FAERS Safety Report 9272830 (Version 1)
Quarter: 2013Q2

REPORT INFORMATION
  Report Type: Spontaneous
  Country: US (occurrence: US)
  Receive Date: 20130506
  Receipt Date: 20130506
  Transmission Date: 20140414
  Serious: No
  Sender: FDA-Public Use
  Company Number: US-ASTRAZENECA-2012SE28735

PATIENT
  Age: 47 Year
  Sex: Male

DRUGS (1)
  1. PRILOSEC OTC [Suspect]
     Indication: DYSPEPSIA
     Route: 048
     Dates: start: 20120426

REACTIONS (4)
  - Nausea [Recovered/Resolved]
  - Dyspepsia [Unknown]
  - Incorrect dose administered [Unknown]
  - Drug ineffective [Unknown]
